FAERS Safety Report 9029670 (Version 2)
Quarter: 2013Q1

REPORT INFORMATION
  Report Type: Spontaneous
  Country: CA (occurrence: CA)
  Receive Date: 20130125
  Receipt Date: 20130128
  Transmission Date: 20140127
  Serious: Yes (Death)
  Sender: FDA-Public Use
  Company Number: PHHY2013CA006999

PATIENT
  Age: 93 Year
  Sex: Female

DRUGS (3)
  1. ACLASTA [Suspect]
     Indication: OSTEOPOROSIS
     Dosage: UKN
     Route: 042
     Dates: start: 20080728
  2. ACLASTA [Suspect]
     Dosage: UKN
     Route: 042
     Dates: start: 20100924
  3. ACLASTA [Suspect]
     Dosage: UKN
     Route: 042
     Dates: start: 20111214

REACTIONS (1)
  - Death [Fatal]
